FAERS Safety Report 21319711 (Version 2)
Quarter: 2022Q3

REPORT INFORMATION
  Report Type: Spontaneous
  Country: US (occurrence: US)
  Receive Date: 20220911
  Receipt Date: 20220916
  Transmission Date: 20221026
  Serious: No
  Sender: FDA-Public Use
  Company Number: US-SA-SAC20220902000555

PATIENT
  Age: 19 Year
  Sex: Female

DRUGS (1)
  1. DUPIXENT [Suspect]
     Active Substance: DUPILUMAB
     Dosage: 300 MG, OTHER
     Route: 058
     Dates: start: 202206

REACTIONS (5)
  - Scar [Unknown]
  - Pruritus [Unknown]
  - Dry eye [Unknown]
  - Eye irritation [Unknown]
  - Rash [Unknown]

NARRATIVE: CASE EVENT DATE: 20220601
